FAERS Safety Report 4750787-3 (Version None)
Quarter: 2005Q3

REPORT INFORMATION
  Report Type: 
  Country: None (occurrence: None)
  Receive Date: 20050823
  Receipt Date: 20050712
  Transmission Date: 20060218
  Serious: Yes (Other)
  Sender: FDA-Public Use
  Company Number: US-MERCK-0507USA01672

PATIENT
  Age: 49 Year
  Sex: Female
  Weight: 95 kg

DRUGS (8)
  1. VIOXX [Suspect]
     Indication: ARTHRITIS
     Route: 048
     Dates: start: 20030606, end: 20030801
  2. PRAVACHOL [Concomitant]
     Route: 065
  3. LEXAPRO [Concomitant]
     Route: 065
  4. TOPROL-XL [Concomitant]
     Route: 065
  5. NEXIUM [Concomitant]
     Route: 065
  6. TOPAMAX [Concomitant]
     Route: 065
  7. PAMELOR [Concomitant]
     Route: 065
  8. IMITREX [Concomitant]
     Route: 065

REACTIONS (1)
  - MYOCARDIAL INFARCTION [None]
